FAERS Safety Report 15118691 (Version 1)
Quarter: 2018Q3

REPORT INFORMATION
  Report Type: Report from Study
  Country: FR (occurrence: FR)
  Receive Date: 20180709
  Receipt Date: 20180709
  Transmission Date: 20181010
  Serious: Yes (Hospitalization, Other)
  Sender: FDA-Public Use
  Company Number: FR-ACCORD-069229

PATIENT
  Age: 8 Week
  Sex: Female
  Weight: 3.2 kg

DRUGS (1)
  1. CISPLATIN. [Suspect]
     Active Substance: CISPLATIN
     Indication: HEPATOBLASTOMA
     Dosage: 6?H INFUSION, TOTAL DOSE: 8.2MG

REACTIONS (4)
  - Weight gain poor [Unknown]
  - Drug administered to patient of inappropriate age [Unknown]
  - Anaemia [Unknown]
  - Ascites [Unknown]
